FAERS Safety Report 8207621-9 (Version None)
Quarter: 2012Q1

REPORT INFORMATION
  Report Type: 
  Country: None (occurrence: None)
  Receive Date: 20120314
  Receipt Date: 20120314
  Transmission Date: 20120608
  Serious: No
  Sender: FDA-Public Use
  Company Number: None

PATIENT
  Age: 56 Year
  Sex: Female

DRUGS (1)
  1. ADDERALL XR 10 [Suspect]
     Indication: ATTENTION DEFICIT/HYPERACTIVITY DISORDER
     Dosage: 90
     Route: 048
     Dates: start: 20120101, end: 20120228

REACTIONS (2)
  - CAPSULE PHYSICAL ISSUE [None]
  - DRUG INEFFECTIVE [None]
